FAERS Safety Report 20664749 (Version 1)
Quarter: 2022Q2

REPORT INFORMATION
  Report Type: Spontaneous
  Country: US (occurrence: None)
  Receive Date: 20220401
  Receipt Date: 20220401
  Transmission Date: 20220720
  Serious: Yes (Other)
  Sender: FDA-Public Use
  Company Number: US-ROCHE-3058737

PATIENT
  Sex: Female

DRUGS (2)
  1. XELODA [Suspect]
     Active Substance: CAPECITABINE
     Indication: Product used for unknown indication
     Route: 048
  2. TUKYSA [Suspect]
     Active Substance: TUCATINIB
     Indication: Neoplasm malignant
     Route: 065

REACTIONS (4)
  - Seizure [Unknown]
  - Diarrhoea [Unknown]
  - Cerebral disorder [Unknown]
  - Hemiplegic migraine [Unknown]
